FAERS Safety Report 11995837 (Version 4)
Quarter: 2016Q3

REPORT INFORMATION
  Report Type: Report from Study
  Country: US (occurrence: US)
  Receive Date: 20160203
  Receipt Date: 20160708
  Transmission Date: 20161109
  Serious: No
  Sender: FDA-Public Use
  Company Number: PHHY2014US112437

PATIENT
  Age: 61 Year
  Sex: Male

DRUGS (15)
  1. SERTRALINE [Concomitant]
     Active Substance: SERTRALINE HYDROCHLORIDE
     Indication: DEPRESSION
     Route: 065
     Dates: start: 20140411
  2. ASPIRIN                            /00346701/ [Concomitant]
     Active Substance: ASCORBIC ACID\ASPIRIN
     Indication: GENERAL PHYSICAL CONDITION ABNORMAL
     Dosage: 81 MG, UNK
     Route: 048
     Dates: start: 20110727
  3. CYCLOBENZAPRINE [Concomitant]
     Active Substance: CYCLOBENZAPRINE
     Indication: MUSCLE SPASTICITY
     Dosage: 5 MG, PRN
     Route: 048
     Dates: start: 20120501, end: 20140411
  4. CARBAMAZEPIN [Concomitant]
     Active Substance: CARBAMAZEPINE
     Indication: TRIGEMINAL NEURALGIA
     Dosage: 100 MG, UNK
     Route: 048
     Dates: start: 20120214
  5. BACLOFEN. [Concomitant]
     Active Substance: BACLOFEN
     Indication: MUSCLE SPASTICITY
     Dosage: 20 MG, TID
     Route: 048
     Dates: start: 20120127
  6. POTASSIUM CHLORIDE. [Concomitant]
     Active Substance: POTASSIUM CHLORIDE
     Indication: GENERAL PHYSICAL CONDITION ABNORMAL
     Dosage: 750 MG, UNK
     Route: 048
     Dates: start: 20121105
  7. VITAMIN D [Concomitant]
     Active Substance: CHOLECALCIFEROL
     Indication: VITAMIN D DEFICIENCY
     Dosage: 1000 IU, UNK
     Route: 048
     Dates: start: 20060228
  8. LEVOBUNOLOL [Concomitant]
     Active Substance: LEVOBUNOLOL
     Indication: GLAUCOMA
     Dosage: 0.5 UNK, UNK
     Route: 047
     Dates: start: 20141009
  9. ACICLOVIR [Concomitant]
     Active Substance: ACYCLOVIR
     Indication: GENITAL HERPES
     Dosage: 400 MG, UNK
     Route: 048
     Dates: start: 20140917
  10. BUPROPION. [Concomitant]
     Active Substance: BUPROPION
     Indication: DEPRESSION
     Dosage: 300 MG, UNK
     Route: 048
     Dates: start: 20071126
  11. VITAMIN B12 [Concomitant]
     Active Substance: CYANOCOBALAMIN
     Indication: GENERAL PHYSICAL CONDITION ABNORMAL
     Dosage: 1000 MG, UNK
     Route: 048
     Dates: start: 20120501, end: 20140411
  12. GILENYA [Suspect]
     Active Substance: FINGOLIMOD HYDROCHLORIDE
     Indication: MULTIPLE SCLEROSIS
     Route: 048
  13. FUROSEMIDE. [Concomitant]
     Active Substance: FUROSEMIDE
     Indication: OEDEMA
     Dosage: 20 MG, UNK
     Route: 048
     Dates: start: 20121105
  14. NAPROXEN. [Concomitant]
     Active Substance: NAPROXEN
     Indication: TRIGEMINAL NEURALGIA
     Dosage: 500 MG, UNK
     Route: 048
     Dates: start: 20130906
  15. VITAMIN B6 [Concomitant]
     Active Substance: PYRIDOXINE HYDROCHLORIDE
     Indication: GENERAL PHYSICAL CONDITION ABNORMAL
     Dosage: UNK
     Route: 048
     Dates: start: 20121105

REACTIONS (9)
  - Animal bite [Recovered/Resolved]
  - Trigeminal neuralgia [Recovered/Resolved]
  - Cognitive disorder [Not Recovered/Not Resolved]
  - Herpes simplex [Recovered/Resolved]
  - Gait disturbance [Not Recovered/Not Resolved]
  - Concomitant disease aggravated [Recovered/Resolved]
  - Oral herpes [Recovered/Resolved]
  - Glossodynia [Recovered/Resolved]
  - Paraesthesia [Recovered/Resolved]

NARRATIVE: CASE EVENT DATE: 20140718
